FAERS Safety Report 6783423-5 (Version None)
Quarter: 2010Q2

REPORT INFORMATION
  Report Type: 
  Country: None (occurrence: None)
  Receive Date: 20100622
  Receipt Date: 20100608
  Transmission Date: 20101027
  Serious: Yes (Other)
  Sender: FDA-Public Use
  Company Number: PHHY2010AU34514

PATIENT
  Sex: Female

DRUGS (10)
  1. CLOZARIL [Suspect]
     Dosage: 600 MG, QD
     Dates: start: 19970809
  2. TRANSDERM-NITRO [Suspect]
     Dosage: 25 MG, QD
  3. OLANZAPINE [Concomitant]
     Dosage: 10 MG, BID
  4. DIAZEPAM [Concomitant]
     Dosage: 5 MG, MANE
  5. MIRTAZAPINE [Concomitant]
     Dosage: 30 MG, NOCTE
  6. FERROGRADUMET [Concomitant]
     Dosage: 1 DF, QD
  7. FOLIC ACID [Concomitant]
     Dosage: 500 UG, TWO MANE
  8. RAMIPRIL [Concomitant]
     Dosage: 5 MG, ONE MANE
  9. ACETAMINOPHEN [Concomitant]
  10. NULYTELY [Concomitant]
     Indication: CONSTIPATION
     Dosage: PRN / DAY

REACTIONS (15)
  - ALANINE AMINOTRANSFERASE INCREASED [None]
  - BLOOD ALBUMIN INCREASED [None]
  - BLOOD ALKALINE PHOSPHATASE INCREASED [None]
  - CARDIAC VENTRICULAR DISORDER [None]
  - DIASTOLIC DYSFUNCTION [None]
  - ELECTROCARDIOGRAM QT PROLONGED [None]
  - ELECTROCARDIOGRAM T WAVE ABNORMAL [None]
  - EMOTIONAL DISTRESS [None]
  - GAMMA-GLUTAMYLTRANSFERASE INCREASED [None]
  - HALLUCINATION, AUDITORY [None]
  - NEUTROPHIL COUNT INCREASED [None]
  - PERICARDIAL EFFUSION [None]
  - RED BLOOD CELL SEDIMENTATION RATE DECREASED [None]
  - SINUS TACHYCARDIA [None]
  - WHITE BLOOD CELL COUNT INCREASED [None]
